FAERS Safety Report 9563136 (Version 1)
Quarter: 2013Q3

REPORT INFORMATION
  Report Type: Spontaneous
  Country: US (occurrence: US)
  Receive Date: 20130927
  Receipt Date: 20130927
  Transmission Date: 20140515
  Serious: No
  Sender: FDA-Public Use
  Company Number: US-BRISTOL-MYERS SQUIBB COMPANY-17329210

PATIENT
  Age: 65 Year
  Sex: Female

DRUGS (6)
  1. ONGLYZA TABS 5 MG [Suspect]
  2. PRAVASTATINE [Concomitant]
  3. KLOR-CON [Concomitant]
  4. FENOFIBRATE [Concomitant]
  5. FUROSEMIDE [Concomitant]
  6. ACTOS [Concomitant]

REACTIONS (1)
  - Creatinine renal clearance decreased [Unknown]
